FAERS Safety Report 6393476-4 (Version None)
Quarter: 2009Q4

REPORT INFORMATION
  Report Type: 
  Country: None (occurrence: None)
  Receive Date: 20091008
  Receipt Date: 20090929
  Transmission Date: 20100525
  Serious: Yes (Hospitalization)
  Sender: FDA-Public Use
  Company Number: FR-WYE-G04529909

PATIENT
  Sex: Male

DRUGS (7)
  1. TAZOCILLINE [Suspect]
     Dosage: UNKNOWN
     Route: 042
     Dates: start: 20090803, end: 20090818
  2. ZYVOXID [Suspect]
     Route: 048
     Dates: start: 20090812, end: 20090819
  3. TRIFLUCAN [Suspect]
     Dosage: UNKNOWN
     Dates: start: 20090806, end: 20090822
  4. FLAGYL [Suspect]
     Dosage: UNKNOWN
     Dates: start: 20090729, end: 20090809
  5. FLAGYL [Suspect]
     Dosage: UNKNOWN
     Dates: start: 20090818, end: 20090827
  6. AUGMENTIN '125' [Suspect]
     Dosage: UNKNOWN
     Route: 048
     Dates: start: 20090725, end: 20090803
  7. CIFLOX [Suspect]
     Dosage: 400 MG STRENGTH; DOSE UNKNOWN
     Route: 042
     Dates: start: 20090803, end: 20090817

REACTIONS (6)
  - ABSCESS LIMB [None]
  - ALANINE AMINOTRANSFERASE INCREASED [None]
  - ASPARTATE AMINOTRANSFERASE INCREASED [None]
  - CHOLECYSTITIS [None]
  - HEPATOSPLENOMEGALY [None]
  - JAUNDICE CHOLESTATIC [None]
